FAERS Safety Report 13861481 (Version 1)
Quarter: 2017Q3

REPORT INFORMATION
  Report Type: Spontaneous
  Country: FR (occurrence: FR)
  Receive Date: 20170811
  Receipt Date: 20170811
  Transmission Date: 20171127
  Serious: Yes (Hospitalization)
  Sender: FDA-Public Use
  Company Number: PHHY2017FR118353

PATIENT
  Age: 30 Year
  Sex: Male

DRUGS (6)
  1. TRILEPTAL [Suspect]
     Active Substance: OXCARBAZEPINE
     Dosage: 1600 MG, QD
     Route: 048
  2. ANAFRANIL [Suspect]
     Active Substance: CLOMIPRAMINE HYDROCHLORIDE
     Indication: NEURALGIA
     Dosage: 75 MG, QD (50 MG MORNING, 25 MG MIDDAY)
     Route: 048
     Dates: start: 20170713
  3. TRILEPTAL [Suspect]
     Active Substance: OXCARBAZEPINE
     Dosage: 1500 MG, QD
     Route: 048
     Dates: start: 20170728
  4. ANAFRANIL [Suspect]
     Active Substance: CLOMIPRAMINE HYDROCHLORIDE
     Dosage: 14 DF (5 DF, 4 DF, 5 DF), QD
     Route: 048
  5. TRILEPTAL [Suspect]
     Active Substance: OXCARBAZEPINE
     Indication: NEURALGIA
     Dosage: 14 DF QD  (5DF MORNING, 5DF MIDDAY, 4DF EVENING)
     Route: 048
     Dates: start: 20161207
  6. TRILEPTAL [Suspect]
     Active Substance: OXCARBAZEPINE
     Dosage: 12 DF (1800 MG), QD (4DF-4DF-4DF)
     Route: 048

REACTIONS (2)
  - Hallucination [Recovered/Resolved]
  - Diplopia [Recovered/Resolved]

NARRATIVE: CASE EVENT DATE: 20170725
